FAERS Safety Report 4319060-1 (Version None)
Quarter: 2004Q1

REPORT INFORMATION
  Report Type: 
  Country: None (occurrence: None)
  Receive Date: 20040318
  Receipt Date: 20040318
  Transmission Date: 20041129
  Serious: Yes (Other)
  Sender: FDA-Public Use
  Company Number: None

PATIENT
  Age: 35 Year
  Sex: Male
  Weight: 79.3795 kg

DRUGS (3)
  1. ADVIL LIQUI-GELS [Suspect]
     Indication: BACK DISORDER
     Dosage: 400-600 MG 4-8 HOURS ORAL
     Route: 048
     Dates: start: 20040308, end: 20040313
  2. ADVIL LIQUI-GELS [Suspect]
     Indication: FOOT FRACTURE
     Dosage: 400-600 MG 4-8 HOURS ORAL
     Route: 048
     Dates: start: 20040308, end: 20040313
  3. ADVIL LIQUI-GELS [Suspect]
     Indication: PAIN MANAGEMENT
     Dosage: 400-600 MG 4-8 HOURS ORAL
     Route: 048
     Dates: start: 20040308, end: 20040313

REACTIONS (5)
  - DYSPEPSIA [None]
  - DYSURIA [None]
  - INFLUENZA [None]
  - PHARMACEUTICAL PRODUCT COMPLAINT [None]
  - URINE ODOUR ABNORMAL [None]
